FAERS Safety Report 19004786 (Version 1)
Quarter: 2021Q1

REPORT INFORMATION
  Report Type: Spontaneous
  Country: JP (occurrence: JP)
  Receive Date: 20210313
  Receipt Date: 20210313
  Transmission Date: 20210420
  Serious: Yes (Hospitalization, Other)
  Sender: FDA-Public Use
  Company Number: JP-LUPIN PHARMACEUTICALS INC.-2021-03094

PATIENT
  Age: 46 Year
  Sex: Female

DRUGS (4)
  1. PREDNISOLONE. [Suspect]
     Active Substance: PREDNISOLONE
     Indication: INTERSTITIAL LUNG DISEASE
     Dosage: 50 MILLIGRAM, QD?AS A PART OF TRIPLE THERAPY
     Route: 065
     Dates: start: 2020, end: 2020
  2. TACROLIMUS. [Suspect]
     Active Substance: TACROLIMUS
     Indication: INTERSTITIAL LUNG DISEASE
     Dosage: 4 MILLIGRAM, QD?AS A PART OF TRIPLE THERAPY
     Route: 065
     Dates: start: 2020, end: 2020
  3. CYCLOPHOSPHAMIDE. [Suspect]
     Active Substance: CYCLOPHOSPHAMIDE
     Indication: INTERSTITIAL LUNG DISEASE
     Dosage: 750 MILLIGRAM PER DOSE ?RECEIVED 4 CYCLES AS A PART OF TRIPLE THERAPY; PULSE DOSES
     Route: 042
     Dates: start: 2020, end: 2020
  4. METHYLPREDNISOLONE. [Suspect]
     Active Substance: METHYLPREDNISOLONE
     Indication: INTERSTITIAL LUNG DISEASE
     Dosage: 500 MILLIGRAM, QD?REMISSION INDUCTION THERAPY; PULSE DOSES
     Route: 065
     Dates: start: 2020, end: 2020

REACTIONS (2)
  - Viral load increased [Recovered/Resolved]
  - COVID-19 pneumonia [Recovered/Resolved]

NARRATIVE: CASE EVENT DATE: 2020
